FAERS Safety Report 11964545 (Version 1)
Quarter: 2016Q1

REPORT INFORMATION
  Report Type: Spontaneous
  Country: US (occurrence: US)
  Receive Date: 20160127
  Receipt Date: 20160127
  Transmission Date: 20160526
  Serious: No
  Sender: FDA-Public Use
  Company Number: US-BRISTOL-MYERS SQUIBB COMPANY-BMS-2016-004905

PATIENT
  Age: 34 Year
  Sex: Male

DRUGS (1)
  1. ABILIFY [Suspect]
     Active Substance: ARIPIPRAZOLE
     Indication: SCHIZOPHRENIA
     Route: 065

REACTIONS (3)
  - Tachyphrenia [Recovered/Resolved]
  - Wrong technique in product usage process [Unknown]
  - Communication disorder [Not Recovered/Not Resolved]

NARRATIVE: CASE EVENT DATE: 20160101
